FAERS Safety Report 19305439 (Version 1)
Quarter: 2021Q2

REPORT INFORMATION
  Report Type: Spontaneous
  Country: BE (occurrence: BE)
  Receive Date: 20210526
  Receipt Date: 20210526
  Transmission Date: 20210717
  Serious: Yes (Other)
  Sender: FDA-Public Use
  Company Number: BE-BEH-2021129353

PATIENT
  Age: 61 Year
  Sex: Female
  Weight: 66 kg

DRUGS (15)
  1. HAEMATE P [Suspect]
     Active Substance: ANTIHEMOPHILIC FACTOR HUMAN
     Indication: VON WILLEBRAND^S DISEASE
     Dosage: 3600 INTERNATIONAL UNIT, SINGLE
     Route: 042
     Dates: start: 20210225, end: 20210225
  2. HAEMATE P [Suspect]
     Active Substance: ANTIHEMOPHILIC FACTOR HUMAN
     Indication: POST PROCEDURAL HAEMORRHAGE
  3. HAEMATE P [Suspect]
     Active Substance: ANTIHEMOPHILIC FACTOR HUMAN
     Indication: ANAL HAEMORRHAGE
     Dosage: 3600 INTERNATIONAL UNIT, SINGLE
     Route: 042
     Dates: start: 20210305, end: 20210305
  4. HAEMATE P [Suspect]
     Active Substance: ANTIHEMOPHILIC FACTOR HUMAN
     Indication: HAEMORRHOIDAL HAEMORRHAGE
  5. HAEMATE P [Suspect]
     Active Substance: ANTIHEMOPHILIC FACTOR HUMAN
     Indication: BLOOD LOSS ANAEMIA
     Dosage: 3600 INTERNATIONAL UNIT, SINGLE
     Route: 042
     Dates: start: 20210311, end: 20210311
  6. HAEMATE P [Suspect]
     Active Substance: ANTIHEMOPHILIC FACTOR HUMAN
     Indication: HAEMORRHOIDAL HAEMORRHAGE
  7. PENTASA [Concomitant]
     Active Substance: MESALAMINE
     Dosage: 1 GRAM, BID
     Route: 065
  8. HAEMATE P [Suspect]
     Active Substance: ANTIHEMOPHILIC FACTOR HUMAN
     Indication: BLOOD LOSS ANAEMIA
     Dosage: 3600 INTERNATIONAL UNIT, SINGLE
     Route: 042
     Dates: start: 20210311, end: 20210311
  9. HAEMATE P [Suspect]
     Active Substance: ANTIHEMOPHILIC FACTOR HUMAN
     Indication: VON WILLEBRAND^S DISEASE
     Dosage: 3600 INTERNATIONAL UNIT, SINGLE
     Route: 042
     Dates: start: 20210225, end: 20210225
  10. HAEMATE P [Suspect]
     Active Substance: ANTIHEMOPHILIC FACTOR HUMAN
     Indication: MELAENA
     Dosage: 3600 INTERNATIONAL UNIT, SINGLE
     Route: 042
     Dates: start: 20210308, end: 20210308
  11. HAEMATE P [Suspect]
     Active Substance: ANTIHEMOPHILIC FACTOR HUMAN
     Indication: ANAL HAEMORRHAGE
     Dosage: 3600 INTERNATIONAL UNIT, SINGLE
     Route: 042
     Dates: start: 20210305, end: 20210305
  12. HAEMATE P [Suspect]
     Active Substance: ANTIHEMOPHILIC FACTOR HUMAN
     Indication: MELAENA
     Dosage: 3600 INTERNATIONAL UNIT, SINGLE
     Route: 042
     Dates: start: 20210308, end: 20210308
  13. HAEMATE P [Suspect]
     Active Substance: ANTIHEMOPHILIC FACTOR HUMAN
     Indication: POST PROCEDURAL HAEMORRHAGE
  14. HAEMATE P [Suspect]
     Active Substance: ANTIHEMOPHILIC FACTOR HUMAN
     Indication: PROPHYLAXIS
     Dosage: 3600 INTERNATIONAL UNIT, SINGLE
     Route: 042
     Dates: start: 20210304, end: 20210304
  15. HAEMATE P [Suspect]
     Active Substance: ANTIHEMOPHILIC FACTOR HUMAN
     Indication: PROPHYLAXIS
     Dosage: 3600 INTERNATIONAL UNIT, SINGLE
     Route: 042
     Dates: start: 20210304, end: 20210304

REACTIONS (2)
  - Large intestinal haemorrhage [Unknown]
  - Haemorrhoidal haemorrhage [Unknown]

NARRATIVE: CASE EVENT DATE: 202103
